FAERS Safety Report 7344322-3 (Version None)
Quarter: 2011Q1

REPORT INFORMATION
  Report Type: 
  Country: None (occurrence: None)
  Receive Date: 20110310
  Receipt Date: 20101115
  Transmission Date: 20110831
  Serious: No
  Sender: FDA-Public Use
  Company Number: A0892449A

PATIENT
  Age: 69 Year
  Sex: Female

DRUGS (1)
  1. NICORETTE [Suspect]
     Indication: SMOKING CESSATION THERAPY
     Route: 002

REACTIONS (4)
  - DRUG ADMINISTRATION ERROR [None]
  - MENTAL IMPAIRMENT [None]
  - TREMOR [None]
  - INTENTIONAL DRUG MISUSE [None]
